FAERS Safety Report 7441881-7 (Version None)
Quarter: 2011Q2

REPORT INFORMATION
  Report Type: 
  Country: None (occurrence: None)
  Receive Date: 20110428
  Receipt Date: 20101102
  Transmission Date: 20111010
  Serious: No
  Sender: FDA-Public Use
  Company Number: US-ASTRAZENECA-2011SE01995

PATIENT
  Sex: Female

DRUGS (4)
  1. CYMBALTA [Concomitant]
  2. ZOMIG [Suspect]
     Dosage: 6-8 SAMPLES A MONTH
     Route: 048
     Dates: start: 20100101
  3. ZOMIG [Suspect]
     Route: 045
  4. AMITRIPTYLINE HCL [Concomitant]

REACTIONS (3)
  - DRUG DOSE OMISSION [None]
  - GASTROOESOPHAGEAL REFLUX DISEASE [None]
  - HEADACHE [None]
